FAERS Safety Report 24703784 (Version 1)
Quarter: 2024Q4

REPORT INFORMATION
  Report Type: Report from Study
  Country: BR (occurrence: BR)
  Receive Date: 20241206
  Receipt Date: 20241206
  Transmission Date: 20250114
  Serious: Yes (Other)
  Sender: EMD SERONO INC
  Company Number: BR-Merck Healthcare KGaA-2024063758

PATIENT
  Age: 24 Year
  Sex: Female

DRUGS (1)
  1. INTERFERON BETA-1A [Suspect]
     Active Substance: INTERFERON BETA-1A
     Indication: Multiple sclerosis
     Dosage: REBIJECT II,  (MONDAY, WEDNESDAY AND FRIDAY)
     Dates: start: 20241016

REACTIONS (2)
  - Appendicitis [Unknown]
  - Vision blurred [Not Recovered/Not Resolved]

NARRATIVE: CASE EVENT DATE: 20241101
